FAERS Safety Report 7978368-9 (Version None)
Quarter: 2011Q4

REPORT INFORMATION
  Report Type: 
  Country: None (occurrence: None)
  Receive Date: 20111209
  Receipt Date: 20111130
  Transmission Date: 20120403
  Serious: Yes (Hospitalization, Other)
  Sender: FDA-Public Use
  Company Number: CIP11001751

PATIENT
  Age: 67 Year
  Sex: Female

DRUGS (52)
  1. ACTONEL [Suspect]
     Dosage: 35 MG, ONCE A WEEK, ORAL
     Route: 048
     Dates: start: 20021021, end: 20080301
  2. ROXICET [Concomitant]
  3. ALUMINIUM CHLORIDE [Concomitant]
  4. XALATAN [Concomitant]
  5. ACIPHEX [Concomitant]
  6. MELOXICAM [Concomitant]
  7. SKELAXIN [Concomitant]
  8. TRIAMCINOLONE [Concomitant]
  9. LIPITOR [Concomitant]
  10. TRAMADOL HCL [Concomitant]
  11. BEXTRA [Concomitant]
  12. NABUMETONE [Concomitant]
  13. LEVAQUIN [Concomitant]
  14. CALCIUM [Concomitant]
  15. CIPRO [Concomitant]
  16. DIPROLENE (BETAMETHASONE DIPROPIONATE) [Concomitant]
  17. ZOVIRAX [Concomitant]
  18. NEXIUM IV [Concomitant]
  19. LOVENOX [Concomitant]
  20. CRESTOR [Concomitant]
  21. ETHEDENT (SODIUM FLUORIDE) [Concomitant]
  22. HYDROCODONE W/APAP (HYDROCODONE, PARACETAMOL) [Concomitant]
  23. FLUOXETINE [Concomitant]
  24. TRAMADOL/APAP (PARACETAMOL, TRAMADOL HYDROCHLORIDE) [Concomitant]
  25. MULTIVITAMIN [Concomitant]
  26. ERY-TAB (ERYTHROMYCIN) [Concomitant]
  27. CLOBETASOL [Concomitant]
  28. ACULAR [Concomitant]
  29. NASONEX [Concomitant]
  30. FLUCONAZOLE [Concomitant]
  31. PROMETHAZINE - CODEINE (CODEINE PHOSPHATE, PROMETHAZINE HYDROCHLORIDE) [Concomitant]
  32. DICLOFENAC [Concomitant]
  33. ALEVE [Concomitant]
  34. PROTONIX [Concomitant]
  35. PAXIL [Concomitant]
  36. VIOXX [Concomitant]
  37. NITROFURANTOIN [Concomitant]
  38. ZITHROMAX [Concomitant]
  39. OXYCODONE AND ACETAMINOPHEN [Concomitant]
  40. LIDODERM [Concomitant]
  41. CRANBERRY (VACCINIUM MACROCARPON) [Concomitant]
  42. ZOCOR [Concomitant]
  43. GLUCOSAMINE [Concomitant]
  44. CELEBREX [Concomitant]
  45. ACTONEL [Suspect]
     Dosage: 30 MG, ORAL
     Route: 048
     Dates: start: 20021212, end: 20031006
  46. FOSAMAX [Suspect]
     Indication: OSTEOPOROSIS
     Dosage: 70 MG WEEKLY, ORAL : 10 MG, ORAL
     Route: 048
     Dates: start: 20001213
  47. FOSAMAX [Suspect]
     Indication: OSTEOPOROSIS
     Dosage: 70 MG WEEKLY, ORAL : 10 MG, ORAL
     Route: 048
     Dates: start: 19991119, end: 20020806
  48. HYDROXYZINE [Concomitant]
  49. LOPROX (CICLOPIROX OLAMINE) [Concomitant]
  50. CLOTRIMAZOLE W/BETAMETHASONE DIPROPIONAT (BETAMETHASONE DIPROPIONATE, [Concomitant]
  51. METHYLPREDNISOLONE [Concomitant]
  52. ASPIRIN [Concomitant]

REACTIONS (17)
  - BONE CALLUS EXCESSIVE [None]
  - FEMUR FRACTURE [None]
  - FRACTURE DELAYED UNION [None]
  - SPINAL COMPRESSION FRACTURE [None]
  - FOOT FRACTURE [None]
  - COLLAGEN DISORDER [None]
  - STRESS FRACTURE [None]
  - FALL [None]
  - HYPERPARATHYROIDISM [None]
  - BONE DISORDER [None]
  - PAIN IN EXTREMITY [None]
  - FRACTURE NONUNION [None]
  - DISEASE RECURRENCE [None]
  - FRACTURE DISPLACEMENT [None]
  - METASTASES TO BONE [None]
  - OSTEOGENESIS IMPERFECTA [None]
  - OSTEOCHONDROSIS [None]
